FAERS Safety Report 20046798 (Version 7)
Quarter: 2022Q2

REPORT INFORMATION
  Report Type: Spontaneous
  Country: CA (occurrence: CA)
  Receive Date: 20211109
  Receipt Date: 20220409
  Transmission Date: 20220721
  Serious: Yes (Hospitalization)
  Sender: FDA-Public Use
  Company Number: CA-CELLTRION INC.-2021CA010597

PATIENT

DRUGS (8)
  1. INFLECTRA [Suspect]
     Active Substance: INFLIXIMAB-DYYB
     Indication: Crohn^s disease
     Dosage: 900 MG, EQUIVALENT OF 10 MG/KG, 0, 2, 6 WEEK, THEN EVERY 4 WEEKS (NOT YET STARTED)
     Route: 042
     Dates: start: 20210712, end: 20210823
  2. INFLECTRA [Suspect]
     Active Substance: INFLIXIMAB-DYYB
     Dosage: 900 MG, EQUIVALENT OF 10 MG/KG, 0, 2, 6 WEEK, THEN EVERY 4 WEEKS
     Route: 042
     Dates: start: 20210726
  3. INFLECTRA [Suspect]
     Active Substance: INFLIXIMAB-DYYB
     Dosage: 900 MG, EQUIVALENT OF 10 MG/KG, 0, 2, 6 WEEK, THEN EVERY 4 WEEKS
     Route: 042
     Dates: start: 20210824
  4. INFLECTRA [Suspect]
     Active Substance: INFLIXIMAB-DYYB
     Dosage: 900 MG, EQUIVALENT OF 10 MG/KG, 0, 2, 6 WEEK, THEN EVERY 4 WEEKS
     Route: 042
     Dates: start: 20210923
  5. INFLECTRA [Suspect]
     Active Substance: INFLIXIMAB-DYYB
     Dosage: 900 MG, EQUIVALENT OF 10 MG/KG, 0, 2, 6 WEEK, THEN EVERY 4 WEEKS
     Route: 042
     Dates: start: 20210923
  6. INFLECTRA [Suspect]
     Active Substance: INFLIXIMAB-DYYB
     Dosage: 900 MG, EQUIVALENT OF 10 MG/KG, 0, 2, 6 WEEK, THEN EVERY 4 WEEKS
     Route: 042
     Dates: start: 20211112, end: 20211112
  7. INFLECTRA [Suspect]
     Active Substance: INFLIXIMAB-DYYB
     Dosage: 900 MG, EQUIVALENT OF 10 MG/KG, 0, 2, 6 WEEK, THEN EVERY 4 WEEKS
     Route: 042
     Dates: start: 20220129
  8. PREDNISONE [Concomitant]
     Active Substance: PREDNISONE
     Dosage: UNK

REACTIONS (7)
  - Condition aggravated [Not Recovered/Not Resolved]
  - Injury [Unknown]
  - Inappropriate schedule of product administration [Unknown]
  - Off label use [Unknown]
  - Off label use [Unknown]
  - Off label use [Unknown]
  - Intentional product use issue [Unknown]

NARRATIVE: CASE EVENT DATE: 20211112
